FAERS Safety Report 15643634 (Version 1)
Quarter: 2018Q4

REPORT INFORMATION
  Report Type: Spontaneous
  Country: US (occurrence: US)
  Receive Date: 20181121
  Receipt Date: 20181121
  Transmission Date: 20190205
  Serious: Yes (Other)
  Sender: FDA-Public Use
  Company Number: US-NAPPMUNDI-USA-2018-0145193

PATIENT
  Sex: Female

DRUGS (2)
  1. DILAUDID [Suspect]
     Active Substance: HYDROMORPHONE HYDROCHLORIDE
     Indication: PRODUCT USED FOR UNKNOWN INDICATION
     Dosage: UNK
     Route: 048
  2. POTASSIUM [Interacting]
     Active Substance: POTASSIUM
     Indication: PRODUCT USED FOR UNKNOWN INDICATION
     Route: 048

REACTIONS (9)
  - Pharyngeal oedema [Unknown]
  - Hand fracture [Not Recovered/Not Resolved]
  - Dyspnoea [Unknown]
  - Drug interaction [Unknown]
  - Cardiac arrest [Unknown]
  - Unevaluable event [Unknown]
  - Suicidal ideation [Unknown]
  - Confusional state [Not Recovered/Not Resolved]
  - Throat irritation [Unknown]
